FAERS Safety Report 5730109-1 (Version None)
Quarter: 2008Q2

REPORT INFORMATION
  Report Type: 
  Country: None (occurrence: None)
  Receive Date: 20080507
  Receipt Date: 20080428
  Transmission Date: 20081010
  Serious: Yes (Death, Hospitalization, Disabling)
  Sender: FDA-Public Use
  Company Number: PHHY2008JP06720

PATIENT
  Age: 47 Year
  Sex: Male

DRUGS (5)
  1. SANDIMMUNE [Suspect]
     Indication: RENAL TRANSPLANT
     Dosage: 100 MG/DAY
     Route: 048
     Dates: start: 20080312
  2. PREDONINE [Concomitant]
     Indication: RENAL TRANSPLANT
     Dosage: 30 MG/DAY
     Route: 048
     Dates: start: 20070312, end: 20070314
  3. CELLCEPT [Concomitant]
     Indication: RENAL TRANSPLANT
     Dosage: 1000 MG/DAY
     Route: 048
     Dates: start: 20070312, end: 20070313
  4. SIMULECT [Suspect]
     Indication: RENAL TRANSPLANT
     Dosage: 20 MG, ONCE/SINGLE
     Route: 042
     Dates: start: 20070312, end: 20070312
  5. METHYLPREDNISOLONE [Concomitant]
     Indication: RENAL TRANSPLANT
     Dosage: 250 MG/DAY
     Route: 048
     Dates: start: 20070312, end: 20070313

REACTIONS (4)
  - DISSEMINATED INTRAVASCULAR COAGULATION [None]
  - GASTROINTESTINAL DISORDER [None]
  - GASTROINTESTINAL HAEMORRHAGE [None]
  - KIDNEY TRANSPLANT REJECTION [None]
